FAERS Safety Report 6923318-7 (Version None)
Quarter: 2010Q3

REPORT INFORMATION
  Report Type: 
  Country: None (occurrence: None)
  Receive Date: 20100813
  Receipt Date: 20100806
  Transmission Date: 20110219
  Serious: Yes (Hospitalization)
  Sender: FDA-Public Use
  Company Number: PHHO2010DE11918

PATIENT
  Sex: Female

DRUGS (3)
  1. CERTICAN [Suspect]
     Indication: RENAL TRANSPLANT
     Dosage: 1.5 MG, DAILY
     Route: 048
     Dates: start: 20100713, end: 20100802
  2. SIMULECT [Suspect]
     Indication: RENAL TRANSPLANT
     Dosage: 20 MG, DAILY
     Route: 042
     Dates: start: 20100510, end: 20100510
  3. SIMULECT [Suspect]
     Dosage: 20 MG, DAILY
     Route: 042
     Dates: start: 20100514, end: 20100514

REACTIONS (4)
  - APHTHOUS STOMATITIS [None]
  - CYTOMEGALOVIRUS INFECTION [None]
  - ESCHERICHIA URINARY TRACT INFECTION [None]
  - LEUKOPENIA [None]
